FAERS Safety Report 8520596-8 (Version None)
Quarter: 2012Q3

REPORT INFORMATION
  Report Type: 
  Country: None (occurrence: None)
  Receive Date: 20120719
  Receipt Date: 20120713
  Transmission Date: 20120928
  Serious: Yes (Other)
  Sender: FDA-Public Use
  Company Number: CA-PFIZER INC-2012165245

PATIENT
  Age: 56 Year
  Sex: Male

DRUGS (2)
  1. DILANTIN [Suspect]
     Indication: MULTIPLE SCLEROSIS
  2. DILANTIN [Suspect]
     Indication: CONVULSION
     Dosage: UNK

REACTIONS (3)
  - DRUG LEVEL BELOW THERAPEUTIC [None]
  - GRAND MAL CONVULSION [None]
  - HEAD INJURY [None]
